FAERS Safety Report 9340561 (Version 1)
Quarter: 2013Q2

REPORT INFORMATION
  Report Type: Spontaneous
  Country: SA (occurrence: SA)
  Receive Date: 20130610
  Receipt Date: 20130610
  Transmission Date: 20140414
  Serious: Yes (Hospitalization)
  Sender: FDA-Public Use
  Company Number: PHHY2013SA057799

PATIENT
  Age: 16 Year
  Sex: Male

DRUGS (1)
  1. CIPROFLOXACIN [Suspect]
     Indication: PNEUMONIA

REACTIONS (9)
  - Posterior reversible encephalopathy syndrome [Unknown]
  - Headache [Unknown]
  - Dizziness [Unknown]
  - Somnolence [Unknown]
  - Grand mal convulsion [Recovered/Resolved]
  - Hypertension [Unknown]
  - Central nervous system lesion [Recovered/Resolved]
  - Dyspnoea [Recovering/Resolving]
  - Tachycardia [Unknown]
